FAERS Safety Report 14094130 (Version 2)
Quarter: 2017Q4

REPORT INFORMATION
  Report Type: Spontaneous
  Country: IT (occurrence: IT)
  Receive Date: 20171016
  Receipt Date: 20171214
  Transmission Date: 20180321
  Serious: Yes (Other)
  Sender: FDA-Public Use
  Company Number: IT-TEVA-815071ACC

PATIENT
  Age: 83 Year
  Sex: Male

DRUGS (2)
  1. HARVONI [Concomitant]
     Active Substance: LEDIPASVIR\SOFOSBUVIR
     Indication: PRODUCT USED FOR UNKNOWN INDICATION
     Route: 048
     Dates: start: 20160629, end: 20161221
  2. REBETOL [Suspect]
     Active Substance: RIBAVIRIN
     Indication: PRODUCT USED FOR UNKNOWN INDICATION
     Route: 048
     Dates: start: 20160629, end: 20160809

REACTIONS (4)
  - Gastritis erosive [Unknown]
  - Weight decreased [Unknown]
  - Hiatus hernia [Unknown]
  - Asthenia [Unknown]

NARRATIVE: CASE EVENT DATE: 20160809
